FAERS Safety Report 8575900-1 (Version None)
Quarter: 2012Q3

REPORT INFORMATION
  Report Type: 
  Country: None (occurrence: None)
  Receive Date: 20120807
  Receipt Date: 20120730
  Transmission Date: 20120928
  Serious: Yes (Hospitalization)
  Sender: FDA-Public Use
  Company Number: NL-ASTRAZENECA-2012SE53479

PATIENT
  Age: 72 Year
  Sex: Female
  Weight: 55 kg

DRUGS (10)
  1. PYRIDOXINE HCL [Concomitant]
     Route: 048
  2. NITRAZEPAM [Concomitant]
     Route: 048
  3. NEBIVOLOL [Concomitant]
     Route: 048
  4. OXYCONTIN [Concomitant]
     Route: 048
  5. ESOMEPRAZOLE MAGNESIUM [Suspect]
     Indication: DYSPEPSIA
     Route: 048
     Dates: start: 20090101, end: 20120709
  6. ANAFRANIL DRAGEE [Concomitant]
     Route: 048
  7. FOLIC ACID [Concomitant]
     Route: 048
  8. ATORVASTATIN CALCIUM [Concomitant]
     Route: 048
  9. ACENOCOUMAROL [Concomitant]
     Route: 048
  10. LOSARTAN POTASSIUM [Concomitant]
     Route: 048

REACTIONS (1)
  - INAPPROPRIATE ANTIDIURETIC HORMONE SECRETION [None]
